FAERS Safety Report 26085033 (Version 1)
Quarter: 2025Q4

REPORT INFORMATION
  Report Type: Spontaneous
  Country: EU (occurrence: EU)
  Receive Date: 20251125
  Receipt Date: 20251125
  Transmission Date: 20260117
  Serious: Yes (Hospitalization, Other)
  Sender: BAXTER
  Company Number: None

PATIENT
  Age: 28 Year
  Sex: Female

DRUGS (2)
  1. SODIUM CHLORIDE [Suspect]
     Active Substance: SODIUM CHLORIDE
     Dosage: SIMULTANEOUSLY WITH PROPOFOL MCT/LCT FRESENIUS
     Route: 065
     Dates: start: 20251018, end: 20251018
  2. PROPOFOL [Suspect]
     Active Substance: PROPOFOL
     Indication: Endoscopy upper gastrointestinal tract
     Dosage: 170 MG, 1 TOTAL, SIMULTANEOUSLY WITH SODIUM CHLORIDE
     Route: 065
     Dates: start: 20251018, end: 20251018

REACTIONS (5)
  - Pyelonephritis [Unknown]
  - Asthenia [Unknown]
  - Renal pain [Unknown]
  - Pyrexia [Unknown]
  - Suspected product quality issue [Unknown]

NARRATIVE: CASE EVENT DATE: 20251018
